FAERS Safety Report 20650074 (Version 1)
Quarter: 2022Q1

REPORT INFORMATION
  Report Type: Spontaneous
  Country: US (occurrence: US)
  Receive Date: 20220329
  Receipt Date: 20220329
  Transmission Date: 20220423
  Serious: Yes (Death)
  Sender: FDA-Public Use
  Company Number: TEVA-US-21Mar2022-11561

PATIENT
  Age: 58 Year
  Sex: Female

DRUGS (3)
  1. BENDEKA [Suspect]
     Active Substance: BENDAMUSTINE HYDROCHLORIDE
     Indication: Diffuse large B-cell lymphoma
     Dosage: 180 MG, 3 WEEKS TIMES 6 CYCLES
     Route: 042
     Dates: start: 202005
  2. TRUXIMA [Suspect]
     Active Substance: RITUXIMAB-ABBS
     Indication: Diffuse large B-cell lymphoma
     Dosage: 760 MG
     Route: 065
     Dates: start: 202005
  3. TRUXIMA [Suspect]
     Active Substance: RITUXIMAB-ABBS
     Dosage: 430 MG
     Route: 065
     Dates: start: 202006

REACTIONS (1)
  - Death [Fatal]

NARRATIVE: CASE EVENT DATE: 20210126
